FAERS Safety Report 11656798 (Version 1)
Quarter: 2015Q4

REPORT INFORMATION
  Report Type: Spontaneous
  Country: IN (occurrence: IN)
  Receive Date: 20151023
  Receipt Date: 20151023
  Transmission Date: 20160304
  Serious: Yes (Hospitalization, Other)
  Sender: FDA-Public Use
  Company Number: IN-ACTAVIS-2015-21875

PATIENT
  Age: 9 Year
  Sex: Male

DRUGS (1)
  1. IBUPROFEN (UNKNOWN) [Suspect]
     Active Substance: IBUPROFEN
     Indication: PYREXIA
     Dosage: UNK
     Route: 048

REACTIONS (2)
  - Obliterative bronchiolitis [Recovering/Resolving]
  - Stevens-Johnson syndrome [Unknown]
